FAERS Safety Report 4313016-0 (Version None)
Quarter: 2004Q1

REPORT INFORMATION
  Report Type: 
  Country: None (occurrence: None)
  Receive Date: 20040304
  Receipt Date: 20040224
  Transmission Date: 20041129
  Serious: Yes (Hospitalization)
  Sender: FDA-Public Use
  Company Number: S04-USA-00840-01

PATIENT
  Age: 91 Year
  Sex: Female

DRUGS (5)
  1. NAMENDA [Suspect]
     Indication: DEMENTIA ALZHEIMER'S TYPE
     Dosage: 5 MG QD PO
     Route: 048
     Dates: start: 20040203, end: 20040218
  2. NAMENDA [Suspect]
     Indication: DEMENTIA ALZHEIMER'S TYPE
     Dosage: 5 MG BID PO
     Route: 048
     Dates: start: 20040219, end: 20040221
  3. ARICEPT [Concomitant]
  4. SYNTHROID [Concomitant]
  5. TOPROL-XL [Concomitant]

REACTIONS (2)
  - GRAND MAL CONVULSION [None]
  - SOMNOLENCE [None]
